FAERS Safety Report 4753674-X (Version None)
Quarter: 2005Q3

REPORT INFORMATION
  Report Type: 
  Country: None (occurrence: None)
  Receive Date: 20050824
  Receipt Date: 20050812
  Transmission Date: 20060218
  Serious: Yes (Hospitalization)
  Sender: FDA-Public Use
  Company Number: 12022

PATIENT
  Age: 73 Year
  Sex: Male
  Weight: 58 kg

DRUGS (1)
  1. MORPHINE [Suspect]
     Indication: PAIN
     Dosage: 20 MG DAILY IV
     Route: 042
     Dates: start: 20050608

REACTIONS (1)
  - INADEQUATE ANALGESIA [None]
